FAERS Safety Report 9216153 (Version 2)
Quarter: 2013Q2

REPORT INFORMATION
  Report Type: Spontaneous
  Country: TR (occurrence: None)
  Receive Date: 20130402
  Receipt Date: 20130416
  Transmission Date: 20140414
  Serious: Yes (Life-Threatening, Hospitalization, Other)
  Sender: FDA-Public Use
  Company Number: 2013P1003624

PATIENT
  Age: 78 Year
  Sex: Male

DRUGS (1)
  1. FENTANYL [Suspect]
     Indication: CANCER PAIN
     Dosage: 100 UG, Q3D, TDER
     Route: 062

REACTIONS (10)
  - Atrioventricular block complete [None]
  - Dizziness [None]
  - Dyspnoea [None]
  - Cachexia [None]
  - Weight decreased [None]
  - Hypotension [None]
  - Mitral valve incompetence [None]
  - Tricuspid valve incompetence [None]
  - Coronary artery occlusion [None]
  - Coronary artery stenosis [None]
